FAERS Safety Report 14969607 (Version 1)
Quarter: 2018Q2

REPORT INFORMATION
  Report Type: Spontaneous
  Country: US (occurrence: US)
  Receive Date: 20180604
  Receipt Date: 20180604
  Transmission Date: 20180711
  Serious: No
  Sender: FDA-Public Use
  Company Number: US-OTSUKA-2017_018458

PATIENT
  Age: 84 Year
  Sex: Female

DRUGS (5)
  1. SAMSCA [Suspect]
     Active Substance: TOLVAPTAN
     Indication: BLOOD SODIUM DECREASED
     Dosage: HALF OF A 15MG, EVERY 3 DAYS
     Route: 048
     Dates: start: 201302
  2. SAMSCA [Suspect]
     Active Substance: TOLVAPTAN
     Indication: BLOOD OSMOLARITY DECREASED
  3. TOLVAPTAN [Suspect]
     Active Substance: TOLVAPTAN
     Indication: BLOOD SODIUM DECREASED
     Dosage: UNK
     Route: 065
  4. SAMSCA [Suspect]
     Active Substance: TOLVAPTAN
     Indication: HYPONATRAEMIA
  5. LASIX [Concomitant]
     Active Substance: FUROSEMIDE
     Indication: PRODUCT USED FOR UNKNOWN INDICATION
     Dosage: UNK
     Route: 065

REACTIONS (24)
  - Dyspnoea [Unknown]
  - Incorrect drug administration duration [Unknown]
  - Erythema [Recovered/Resolved]
  - Diarrhoea [Recovered/Resolved]
  - Flushing [Unknown]
  - Dysuria [Recovered/Resolved]
  - Fluid retention [Not Recovered/Not Resolved]
  - Weight increased [Not Recovered/Not Resolved]
  - Insomnia [Unknown]
  - Burning sensation [Recovered/Resolved]
  - Nausea [Recovered/Resolved]
  - Thirst [Recovered/Resolved]
  - Inappropriate schedule of drug administration [Unknown]
  - Prescribed underdose [Unknown]
  - Peripheral swelling [Recovered/Resolved]
  - Adverse event [Unknown]
  - Renal disorder [Recovered/Resolved]
  - Urine output decreased [Unknown]
  - Wrong technique in product usage process [Unknown]
  - Fear of falling [Unknown]
  - Dizziness [Recovered/Resolved]
  - Cardiac failure congestive [Not Recovered/Not Resolved]
  - Atrial fibrillation [Unknown]
  - Feeling hot [Unknown]

NARRATIVE: CASE EVENT DATE: 201302
